FAERS Safety Report 19287979 (Version 2)
Quarter: 2021Q3

REPORT INFORMATION
  Report Type: Report from Study
  Country: US (occurrence: US)
  Receive Date: 20210522
  Receipt Date: 20210828
  Transmission Date: 20211014
  Serious: No
  Sender: FDA-Public Use
  Company Number: NVSC2021US108444

PATIENT
  Sex: Female

DRUGS (1)
  1. GILENYA [Suspect]
     Active Substance: FINGOLIMOD HYDROCHLORIDE
     Indication: MULTIPLE SCLEROSIS
     Dosage: 0.5 MG, QD
     Route: 048
     Dates: start: 20210506

REACTIONS (7)
  - Swelling face [Unknown]
  - Hypersensitivity [Unknown]
  - Pruritus [Unknown]
  - Eye swelling [Unknown]
  - Flushing [Unknown]
  - Erythema [Unknown]
  - Swelling [Unknown]
